FAERS Safety Report 17149027 (Version 2)
Quarter: 2019Q4

REPORT INFORMATION
  Report Type: Report from Study
  Country: US (occurrence: US)
  Receive Date: 20191213
  Receipt Date: 20191223
  Transmission Date: 20200122
  Serious: Yes (Death)
  Sender: FDA-Public Use
  Company Number: US-ROCHE-2490856

PATIENT
  Sex: Female

DRUGS (1)
  1. OCREVUS [Suspect]
     Active Substance: OCRELIZUMAB
     Indication: PRIMARY PROGRESSIVE MULTIPLE SCLEROSIS
     Dosage: DATE OF TREATMENT: 05/DEC/2018 AND 06/JUN/2019?INFUSE 600MG INTRAVENOUSLY EVERY 6 MONTH
     Route: 042
     Dates: start: 20181121

REACTIONS (1)
  - Death [Fatal]
